FAERS Safety Report 8375612-3 (Version None)
Quarter: 2012Q2

REPORT INFORMATION
  Report Type: 
  Country: None (occurrence: None)
  Receive Date: 20120517
  Receipt Date: 20120517
  Transmission Date: 20120825
  Serious: No
  Sender: FDA-Public Use
  Company Number: None

PATIENT
  Age: 83 Year
  Sex: Female

DRUGS (1)
  1. SENSIPAR [Suspect]
     Dosage: 30MG DAILY PO
     Route: 048
     Dates: start: 20120201

REACTIONS (6)
  - FEELING HOT [None]
  - FLUSHING [None]
  - SENSORY DISTURBANCE [None]
  - CONDITION AGGRAVATED [None]
  - PARAESTHESIA [None]
  - HYPOAESTHESIA [None]
